FAERS Safety Report 19057101 (Version 1)
Quarter: 2021Q1

REPORT INFORMATION
  Report Type: Spontaneous
  Country: US (occurrence: US)
  Receive Date: 20210324
  Receipt Date: 20210324
  Transmission Date: 20210420
  Serious: No
  Sender: FDA-Public Use
  Company Number: US-HISAMITSU-2020-US-006706

PATIENT
  Age: 68 Year
  Sex: Female
  Weight: 59.42 kg

DRUGS (11)
  1. VITAMIN D [Concomitant]
     Active Substance: VITAMIN D NOS
  2. CLONAZEPAM. [Concomitant]
     Active Substance: CLONAZEPAM
  3. SALONPAS LIDOCAINE PAIN RELIEVING [Suspect]
     Active Substance: LIDOCAINE
     Indication: ANALGESIC THERAPY
     Dosage: APPLIED ONE PATCH EVERY NIGHT
     Route: 061
     Dates: start: 202002, end: 20200329
  4. ATORVASTATIN [Concomitant]
     Active Substance: ATORVASTATIN
  5. SALONPAS PAIN RELIEF [Suspect]
     Active Substance: MENTHOL\METHYL SALICYLATE
     Indication: ANALGESIC THERAPY
     Dosage: APPLIED DAILY
     Route: 061
  6. NASACORT [Concomitant]
     Active Substance: TRIAMCINOLONE ACETONIDE
  7. BENAZEPRIL [Concomitant]
     Active Substance: BENAZEPRIL HYDROCHLORIDE
  8. LISPRO INSULIN [Concomitant]
     Active Substance: INSULIN LISPRO
  9. LEXAPRO [Concomitant]
     Active Substance: ESCITALOPRAM OXALATE
  10. XYZAL [Concomitant]
     Active Substance: LEVOCETIRIZINE DIHYDROCHLORIDE
  11. BIOTIN [Concomitant]
     Active Substance: BIOTIN

REACTIONS (2)
  - Joint swelling [Unknown]
  - Peripheral swelling [Unknown]

NARRATIVE: CASE EVENT DATE: 202002
